FAERS Safety Report 7467614-6 (Version None)
Quarter: 2011Q2

REPORT INFORMATION
  Report Type: 
  Country: None (occurrence: None)
  Receive Date: 20110505
  Receipt Date: 20110505
  Transmission Date: 20111010
  Serious: Yes (Hospitalization)
  Sender: FDA-Public Use
  Company Number: None

PATIENT
  Age: 82 Year
  Sex: Male
  Weight: 81.2 kg

DRUGS (2)
  1. PIPERACILLIN AND TAZOBACTAM [Suspect]
     Indication: CELLULITIS
     Dosage: 3.375 GM TID IV
     Route: 042
     Dates: start: 20100723, end: 20100805
  2. VANCOMYCIN [Suspect]
     Indication: CELLULITIS
     Dosage: 1.25 GM EVERY DAY IV
     Route: 042
     Dates: start: 20100719, end: 20100805

REACTIONS (1)
  - DRUG ERUPTION [None]
